FAERS Safety Report 10174537 (Version 1)
Quarter: 2014Q2

REPORT INFORMATION
  Report Type: Spontaneous
  Country: FI (occurrence: FI)
  Receive Date: 20140515
  Receipt Date: 20140515
  Transmission Date: 20141212
  Serious: Yes (Hospitalization)
  Sender: FDA-Public Use
  Company Number: FI-PFIZER INC-2014132969

PATIENT
  Age: 77 Year
  Sex: Male

DRUGS (3)
  1. INLYTA [Suspect]
     Indication: RENAL CANCER
     Dosage: 5 MG, 2X/DAY
     Dates: start: 2013
  2. INLYTA [Suspect]
     Dosage: 5 MG, 1X/DAY
     Dates: start: 2013, end: 2013
  3. INLYTA [Suspect]
     Dosage: 5 MG, 2X/DAY
     Dates: start: 2013, end: 201403

REACTIONS (3)
  - Appendicitis [Recovered/Resolved]
  - Disease progression [Unknown]
  - Renal cancer [Unknown]
